FAERS Safety Report 24195146 (Version 2)
Quarter: 2025Q3

REPORT INFORMATION
  Report Type: Spontaneous
  Country: US (occurrence: US)
  Receive Date: 20240809
  Receipt Date: 20250814
  Transmission Date: 20251021
  Serious: Yes (Other)
  Sender: ALEXION PHARMACEUTICALS
  Company Number: 2024A170416

PATIENT
  Age: 61 Year
  Sex: Female
  Weight: 74.7 kg

DRUGS (6)
  1. TRUQAP [Suspect]
     Active Substance: CAPIVASERTIB
     Dosage: 400 MILLIGRAM, BID
  2. FULVESTRANT [Suspect]
     Active Substance: FULVESTRANT
  3. AFINITOR [Concomitant]
     Active Substance: EVEROLIMUS
  4. LANTUS [Concomitant]
     Active Substance: INSULIN GLARGINE
  5. METFORMIN [Concomitant]
     Active Substance: METFORMIN HYDROCHLORIDE
     Dosage: 1 DOSAGE FORM, QD
  6. JARDIANCE [Concomitant]
     Active Substance: EMPAGLIFLOZIN
     Dosage: 1 DOSAGE FORM, QD

REACTIONS (3)
  - Pneumonitis [Unknown]
  - Blood glucose increased [Unknown]
  - Body mass index increased [Unknown]
